FAERS Safety Report 7287920-8 (Version None)
Quarter: 2011Q1

REPORT INFORMATION
  Report Type: 
  Country: None (occurrence: None)
  Receive Date: 20110211
  Receipt Date: 20110208
  Transmission Date: 20110831
  Serious: No
  Sender: FDA-Public Use
  Company Number: US-PFIZER INC-2011028546

PATIENT
  Sex: Male
  Weight: 77.1 kg

DRUGS (2)
  1. NEURONTIN [Suspect]
     Indication: NEURALGIA
     Dosage: 300 MG, 3X/DAY
     Route: 048
     Dates: start: 20110101
  2. TYLENOL PM [Suspect]
     Indication: PAIN
     Dosage: UNK

REACTIONS (2)
  - INSOMNIA [None]
  - PAIN [None]
